FAERS Safety Report 9022723 (Version 1)
Quarter: 2013Q1

REPORT INFORMATION
  Report Type: Spontaneous
  Country: US (occurrence: US)
  Receive Date: 20130120
  Receipt Date: 20130120
  Transmission Date: 20140127
  Serious: No
  Sender: FDA-Public Use
  Company Number: US-ALLERGAN-1217967US

PATIENT
  Age: 47 Year
  Sex: Male

DRUGS (2)
  1. BOTOX? [Suspect]
     Indication: TORTICOLLIS
     Dosage: 300 UNITS, SINGLE
     Route: 030
     Dates: start: 201211, end: 201211
  2. BOTOX? [Suspect]
     Dosage: 200 UNITS, SINGLE

REACTIONS (2)
  - Dyspnoea [Unknown]
  - Dysphagia [Unknown]
